FAERS Safety Report 6415403-3 (Version None)
Quarter: 2009Q4

REPORT INFORMATION
  Report Type: 
  Country: None (occurrence: None)
  Receive Date: 20091027
  Receipt Date: 20091016
  Transmission Date: 20100525
  Serious: Yes (Hospitalization)
  Sender: FDA-Public Use
  Company Number: US-CELGENEUS-163-20785-09091971

PATIENT
  Sex: Female

DRUGS (2)
  1. THALOMID [Suspect]
     Indication: MULTIPLE MYELOMA
     Route: 048
     Dates: start: 20061001
  2. THALOMID [Suspect]
     Route: 048
     Dates: start: 20080101

REACTIONS (4)
  - CARDIAC DISORDER [None]
  - DEHYDRATION [None]
  - DYSPNOEA [None]
  - VOMITING [None]
